FAERS Safety Report 8330246-1 (Version None)
Quarter: 2012Q2

REPORT INFORMATION
  Report Type: 
  Country: None (occurrence: None)
  Receive Date: 20120502
  Receipt Date: 20120427
  Transmission Date: 20120825
  Serious: No
  Sender: FDA-Public Use
  Company Number: US-TEVA-335789USA

PATIENT
  Sex: Female

DRUGS (1)
  1. COPAXONE [Suspect]
     Indication: MULTIPLE SCLEROSIS
     Dosage: 20 MILLIGRAM;
     Route: 058
     Dates: start: 20110505

REACTIONS (5)
  - IMMEDIATE POST-INJECTION REACTION [None]
  - DYSGEUSIA [None]
  - ANXIETY [None]
  - FLUSHING [None]
  - URTICARIA [None]
